FAERS Safety Report 22366124 (Version 1)
Quarter: 2023Q2

REPORT INFORMATION
  Report Type: Spontaneous
  Country: FR (occurrence: FR)
  Receive Date: 20230525
  Receipt Date: 20230525
  Transmission Date: 20230721
  Serious: Yes (Other)
  Sender: FDA-Public Use
  Company Number: None

PATIENT
  Age: 55 Year
  Sex: Male
  Weight: 71 kg

DRUGS (7)
  1. CLOZAPINE [Suspect]
     Active Substance: CLOZAPINE
     Indication: Product used for unknown indication
     Dosage: 3 TABLETS OF 100MG
     Dates: start: 20230328, end: 20230328
  2. MELATONIN [Concomitant]
     Active Substance: MELATONIN
     Dosage: STRENGTH:  2 MG, IN THE EVENING
     Dates: start: 20220902
  3. VALPROATE SODIUM [Concomitant]
     Active Substance: VALPROATE SODIUM
     Dosage: STRENGTH: 200 MG, 2 TABLETS IN THE MORNING, 1 AT NOON AND 3 IN THE EVENING
     Dates: start: 20210902
  4. POLYETHYLENE GLYCOL 4000 [Concomitant]
     Active Substance: POLYETHYLENE GLYCOL 4000
     Dosage: IN THE MORNING
  5. MIRTAZAPINE [Concomitant]
     Active Substance: MIRTAZAPINE
     Dosage: STRENGTH: 15 MG, 2 TABLETS IN THE EVENING
     Dates: start: 20220902
  6. CYAMEMAZINE [Concomitant]
     Active Substance: CYAMEMAZINE
     Dosage: STRENGTH:  25 MG SCORED FILM-COATED TABLET, 2 TABLETS IN THE EVENING
     Dates: start: 20210902
  7. TRIMEPRAZINE [Concomitant]
     Active Substance: TRIMEPRAZINE
     Dosage: STRENGTH: 5 MG SCORED FILM-COATED TABLET, MEDICATION NOT ADMINISTERED

REACTIONS (4)
  - Oxygen saturation decreased [Recovered/Resolved]
  - Somnolence [Recovered/Resolved]
  - Wrong patient received product [Recovered/Resolved]
  - Vomiting [Recovered/Resolved]

NARRATIVE: CASE EVENT DATE: 20230328
